FAERS Safety Report 9578066 (Version 1)
Quarter: 2013Q4

REPORT INFORMATION
  Report Type: Spontaneous
  Country: US (occurrence: US)
  Receive Date: 20131001
  Receipt Date: 20131001
  Transmission Date: 20140711
  Serious: No
  Sender: FDA-Public Use
  Company Number: US-AMGEN-USASP2013011898

PATIENT
  Age: 64 Year
  Sex: Female

DRUGS (1)
  1. ENBREL [Suspect]
     Indication: RHEUMATOID ARTHRITIS
     Dosage: 50 MG, QWK
     Route: 058
     Dates: start: 20120308

REACTIONS (7)
  - Pain [Unknown]
  - Gait disturbance [Unknown]
  - Alopecia [Unknown]
  - Dry skin [Unknown]
  - Drug effect incomplete [Unknown]
  - Sinusitis [Unknown]
  - Ear infection [Unknown]
